FAERS Safety Report 7366835-0 (Version None)
Quarter: 2011Q1

REPORT INFORMATION
  Report Type: 
  Country: None (occurrence: None)
  Receive Date: 20110311
  Receipt Date: 20110228
  Transmission Date: 20110831
  Serious: Yes (Other)
  Sender: FDA-Public Use
  Company Number: 026286

PATIENT
  Age: 85 Year
  Sex: Male

DRUGS (2)
  1. KEPPRA [Suspect]
     Dosage: 500 MG BID, 750 MG BID
     Dates: start: 20101201
  2. KEPPRA [Suspect]
     Dosage: 500 MG BID, 750 MG BID
     Dates: start: 20110101

REACTIONS (6)
  - ORAL DISORDER [None]
  - MUSCULOSKELETAL STIFFNESS [None]
  - TREMOR [None]
  - EYE DISORDER [None]
  - APATHY [None]
  - PNEUMONIA [None]
